FAERS Safety Report 7473963-8 (Version None)
Quarter: 2011Q2

REPORT INFORMATION
  Report Type: 
  Country: None (occurrence: None)
  Receive Date: 20110511
  Receipt Date: 20090831
  Transmission Date: 20111010
  Serious: Yes (Death, Other)
  Sender: FDA-Public Use
  Company Number: US-BAYER-200931929NA

PATIENT
  Age: 68 Year
  Sex: Male
  Weight: 88.7 kg

DRUGS (20)
  1. CLONIDINE [Concomitant]
     Dosage: 0.1- 0.2MG 2- 3 TIMES A DAY AND AS NEEDED
     Route: 048
  2. LASIX [Concomitant]
     Dosage: 20 MG, QD
     Route: 048
  3. NITROGLYCERIN [Concomitant]
     Dosage: UNK
     Route: 042
     Dates: start: 20021217
  4. RED BLOOD CELLS, CONCENTRATED [Concomitant]
     Dosage: 2 U, UNK
     Route: 042
     Dates: start: 20021217
  5. LOPRESSOR [Concomitant]
     Dosage: 50- 100MG TWICE A DAY
     Route: 048
  6. ZOCOR [Concomitant]
     Dosage: 20 MG, QD
     Route: 048
  7. MAXZIDE [Concomitant]
     Dosage: 75/50MG DAILY
     Route: 048
  8. LASIX [Concomitant]
     Dosage: 60
     Route: 042
     Dates: start: 20021217
  9. TRASYLOL [Suspect]
     Indication: CORONARY ARTERY BYPASS
     Dosage: 200 CC LOADING DOSE
     Route: 042
     Dates: start: 20021217, end: 20021217
  10. LANOXIN [Concomitant]
     Dosage: 0.25 MG, QD
     Route: 048
  11. VANCOMYCIN [Concomitant]
     Dosage: 1 G, UNK
     Route: 042
     Dates: start: 20021217
  12. PROCARDIA [Concomitant]
     Dosage: 90 MG, UNK
     Route: 048
  13. ZINACEF [Concomitant]
     Dosage: 1.5 G, UNK
     Route: 042
     Dates: start: 20021217
  14. HEPARIN [Concomitant]
     Dosage: 5000 U, UNK
     Route: 042
     Dates: start: 20021217
  15. MANNITOL [Concomitant]
     Dosage: 450CC
     Route: 042
     Dates: start: 20021217
  16. TRASYLOL [Suspect]
     Indication: MITRAL VALVE REPAIR
     Dosage: 1 ML, INITIAL DOSE
     Route: 042
     Dates: start: 20021217, end: 20021217
  17. TRASYLOL [Suspect]
     Indication: COX-MAZE PROCEDURE
     Dosage: 50CC/HOUR INFUSION
     Route: 042
     Dates: start: 20021217, end: 20021217
  18. ACETYLSALICYLIC ACID SRT [Concomitant]
     Dosage: 81 MG, QD
     Route: 048
  19. COUMADIN [Concomitant]
     Dosage: 5MG TUESDAY-THURSDAY, 7.5MG MONDAY AND FRIDAY
     Route: 048
  20. NITROGLYCERIN [Concomitant]
     Dosage: 0.4 MG, PRN
     Route: 060

REACTIONS (14)
  - FEAR [None]
  - RENAL IMPAIRMENT [None]
  - CARDIAC FAILURE CONGESTIVE [None]
  - STRESS [None]
  - RENAL INJURY [None]
  - RENAL FAILURE [None]
  - DEATH [None]
  - MULTI-ORGAN FAILURE [None]
  - EMOTIONAL DISTRESS [None]
  - UNEVALUABLE EVENT [None]
  - PAIN [None]
  - ANXIETY [None]
  - ANHEDONIA [None]
  - INJURY [None]
